FAERS Safety Report 24392645 (Version 2)
Quarter: 2024Q4

REPORT INFORMATION
  Report Type: Spontaneous
  Country: US (occurrence: US)
  Receive Date: 20241003
  Receipt Date: 20241023
  Transmission Date: 20250114
  Serious: No
  Sender: BAYER HEALTHCARE PHARMACEUTICALS INC.
  Company Number: US-BAYER-2024A138660

PATIENT
  Age: 55 Year
  Sex: Female

DRUGS (2)
  1. GADAVIST [Suspect]
     Active Substance: GADOBUTROL
     Indication: Diffusion-weighted brain MRI
     Dosage: UNK UNK, ONCE
     Dates: start: 20240917, end: 20240917
  2. GADAVIST [Suspect]
     Active Substance: GADOBUTROL
     Indication: Magnetic resonance imaging breast
     Dosage: 6.1 ML, ONCE
     Route: 042
     Dates: start: 20240819, end: 20240819

REACTIONS (6)
  - Muscle tightness [None]
  - Nausea [None]
  - Feeling hot [None]
  - Pain in extremity [None]
  - Hypoaesthesia [None]
  - Paraesthesia [Not Recovered/Not Resolved]

NARRATIVE: CASE EVENT DATE: 20240917
